FAERS Safety Report 7367311-1 (Version None)
Quarter: 2011Q1

REPORT INFORMATION
  Report Type: 
  Country: None (occurrence: None)
  Receive Date: 20110322
  Receipt Date: 20110315
  Transmission Date: 20110831
  Serious: Yes (Hospitalization, Other)
  Sender: FDA-Public Use
  Company Number: US-JNJFOC-20100806900

PATIENT
  Sex: Female

DRUGS (5)
  1. LEVAQUIN [Suspect]
     Indication: ACUTE SINUSITIS
     Route: 048
  2. LEVAQUIN [Suspect]
     Indication: PRODUCT USED FOR UNKNOWN INDICATION
     Route: 048
  3. MEDROL [Suspect]
     Indication: ASTHMA
     Route: 048
  4. MEDROL [Suspect]
     Indication: ACUTE SINUSITIS
     Route: 048
  5. LEVAQUIN [Suspect]
     Indication: ASTHMA
     Route: 048

REACTIONS (4)
  - ANXIETY [None]
  - LIGAMENT RUPTURE [None]
  - DEPRESSION [None]
  - TENDONITIS [None]
